FAERS Safety Report 5444880-X (Version None)
Quarter: 2007Q3

REPORT INFORMATION
  Report Type: 
  Country: None (occurrence: None)
  Receive Date: 20070827
  Receipt Date: 20070814
  Transmission Date: 20080115
  Serious: Yes (Other)
  Sender: FDA-Public Use
  Company Number: B0484344A

PATIENT
  Age: 27 Year
  Sex: Female

DRUGS (6)
  1. AMOXICILLIN TRIHYDRATE [Suspect]
     Indication: APPENDICITIS
     Dosage: ORAL
     Route: 048
  2. AMOXICILLIN + CLAVULANATE POTASSIUM [Suspect]
     Dosage: INTRAVENOUS
     Route: 042
  3. ACETAMINOPHEN [Suspect]
     Indication: PAIN
     Dosage: INTRAMUSCULAR
     Route: 030
  4. FLUID THERAPY-UNSPECIFIED (FORMULATION UNKNOWN) (FLUID THERAPY-UNSPECI [Suspect]
     Dosage: INTRAMUSCULAR
     Route: 030
  5. HYOSCINE BUTYLBROMIDE (FORMULATION UNKNOWN) (HYOSCINE BUTYLBROMIDE) [Suspect]
     Dosage: 20 MG TWICE PER DAY INTRAMUSCULAR
     Route: 030
  6. YEAST (FORMULATION UNKNOWN) (YEAST) [Suspect]
     Dosage: ORAL
     Route: 048

REACTIONS (6)
  - ABORTION INDUCED [None]
  - APPENDICITIS [None]
  - CONDITION AGGRAVATED [None]
  - DRUG EXPOSURE DURING PREGNANCY [None]
  - NO THERAPEUTIC RESPONSE [None]
  - SEPSIS [None]
